FAERS Safety Report 9229056 (Version 3)
Quarter: 2013Q2

REPORT INFORMATION
  Report Type: Spontaneous
  Country: US (occurrence: US)
  Receive Date: 20130412
  Receipt Date: 20130514
  Transmission Date: 20140414
  Serious: No
  Sender: FDA-Public Use
  Company Number: US-009507513-1304USA005373

PATIENT
  Age: 24 Year
  Sex: Female

DRUGS (8)
  1. PEGINTRON [Suspect]
     Indication: HEPATITIS C
     Dosage: 80 MICROGRAM/0.5 ML
     Dates: start: 20130408
  2. PEGINTRON [Suspect]
     Dosage: 80 MICROGRAM, QW
     Route: 058
     Dates: start: 20130408
  3. REBETOL [Suspect]
     Dosage: UNK
     Route: 048
     Dates: start: 20130408
  4. TELAPREVIR [Suspect]
     Dosage: UNK
     Dates: start: 20130408
  5. IMODIUM [Concomitant]
  6. NYSTATIN [Concomitant]
  7. CORTISONE [Concomitant]
  8. PHENERGAN (PROMETHAZINE HYDROCHLORIDE) [Concomitant]

REACTIONS (7)
  - Feeling hot [Unknown]
  - Erythema [Not Recovered/Not Resolved]
  - Influenza like illness [Not Recovered/Not Resolved]
  - Pain [Not Recovered/Not Resolved]
  - Rash [Not Recovered/Not Resolved]
  - Underdose [Unknown]
  - Product container issue [Unknown]
